FAERS Safety Report 10258542 (Version 1)
Quarter: 2014Q2

REPORT INFORMATION
  Report Type: Report from Study
  Country: PH (occurrence: PH)
  Receive Date: 20140625
  Receipt Date: 20140625
  Transmission Date: 20141212
  Serious: Yes (Death)
  Sender: FDA-Public Use
  Company Number: PHHY2014PH078416

PATIENT
  Sex: Male

DRUGS (2)
  1. GLIVEC [Suspect]
     Dosage: 4 DF, DAILY
     Route: 048
     Dates: start: 20090621
  2. GLIVEC [Suspect]
     Dosage: 6 DF, DAILY
     Route: 048
     Dates: start: 20131029, end: 20131120

REACTIONS (1)
  - Death [Fatal]
